FAERS Safety Report 14402419 (Version 1)
Quarter: 2018Q1

REPORT INFORMATION
  Report Type: Spontaneous
  Country: SA (occurrence: SA)
  Receive Date: 20180116
  Receipt Date: 20180116
  Transmission Date: 20180509
  Serious: Yes (Life-Threatening, Hospitalization)
  Sender: FDA-Public Use
  Company Number: None

PATIENT

DRUGS (1)
  1. DIGOXIN. [Suspect]
     Active Substance: DIGOXIN
     Route: 042
     Dates: start: 20170606, end: 20170606

REACTIONS (3)
  - Bradycardia [None]
  - Depressed level of consciousness [None]
  - Loss of consciousness [None]

NARRATIVE: CASE EVENT DATE: 20170606
